FAERS Safety Report 24719272 (Version 1)
Quarter: 2024Q4

REPORT INFORMATION
  Report Type: Spontaneous
  Country: US (occurrence: US)
  Receive Date: 20241210
  Receipt Date: 20241210
  Transmission Date: 20250115
  Serious: No
  Sender: BLUEPRINT MEDICINES
  Company Number: US-Blueprint Medicines Corporation-5560

PATIENT
  Age: 74 Year
  Sex: Female

DRUGS (2)
  1. AYVAKIT [Suspect]
     Active Substance: AVAPRITINIB
     Indication: Soft tissue neoplasm
     Route: 048
     Dates: start: 20240611
  2. AYVAKIT [Suspect]
     Active Substance: AVAPRITINIB
     Indication: Connective tissue neoplasm
     Route: 065

REACTIONS (4)
  - Headache [Unknown]
  - Abdominal pain upper [Unknown]
  - Insomnia [Unknown]
  - Disturbance in attention [Unknown]
